FAERS Safety Report 14970216 (Version 1)
Quarter: 2018Q2

REPORT INFORMATION
  Report Type: Spontaneous
  Country: US (occurrence: US)
  Receive Date: 20180513
  Receipt Date: 20180513
  Transmission Date: 20180711
  Serious: Yes (Disabling, Congenital Anomaly, Other)
  Sender: FDA-Public Use
  Company Number: None

PATIENT
  Age: 39 Year
  Sex: Female
  Weight: 51.75 kg

DRUGS (5)
  1. DEPAKOTE [Concomitant]
     Active Substance: DIVALPROEX SODIUM
  2. LIALDA [Concomitant]
     Active Substance: MESALAMINE
  3. OMEGA 3 [Concomitant]
     Active Substance: OMEGA-3 FATTY ACIDS
  4. LUPRON DEPOT [Suspect]
     Active Substance: LEUPROLIDE ACETATE
     Indication: INFERTILITY MALE
  5. VITAMIN D FOLATE [Concomitant]

REACTIONS (9)
  - Gait inability [None]
  - Dizziness [None]
  - Abortion spontaneous [None]
  - Asthenia [None]
  - Orthostatic hypotension [None]
  - Trisomy 13 [None]
  - Dyspnoea [None]
  - Hypoglycaemia [None]
  - Autonomic nervous system imbalance [None]

NARRATIVE: CASE EVENT DATE: 20150224
